FAERS Safety Report 21152032 (Version 1)
Quarter: 2022Q3

REPORT INFORMATION
  Report Type: Spontaneous
  Country: US (occurrence: US)
  Receive Date: 20220730
  Receipt Date: 20220730
  Transmission Date: 20221027
  Serious: No
  Sender: FDA-Public Use
  Company Number: US-SA-SAC20220722000976

PATIENT
  Sex: Female

DRUGS (1)
  1. DUPIXENT [Suspect]
     Active Substance: DUPILUMAB
     Indication: Dermatitis atopic
     Dosage: 200MG, QM
     Route: 058
     Dates: start: 20210120

REACTIONS (4)
  - Arthralgia [Unknown]
  - Dermatitis atopic [Unknown]
  - Off label use [Unknown]
  - Product use issue [Unknown]
